FAERS Safety Report 9365828 (Version 2)
Quarter: 2013Q4

REPORT INFORMATION
  Report Type: Spontaneous
  Country: FR (occurrence: FR)
  Receive Date: 20130625
  Receipt Date: 20131115
  Transmission Date: 20140711
  Serious: Yes (Hospitalization)
  Sender: FDA-Public Use
  Company Number: PHHY2013FR064458

PATIENT
  Age: 72 Year
  Sex: Female

DRUGS (8)
  1. AFINITOR [Suspect]
     Indication: BREAST CANCER
     Dosage: 5 MG, QD
     Route: 048
     Dates: start: 20130518, end: 20130522
  2. AROMASIN [Suspect]
     Indication: BREAST CANCER
     Dosage: 25 MG, QD
     Route: 048
     Dates: start: 20120412, end: 20130522
  3. CYMBALTA [Suspect]
     Indication: DEPRESSION
     Dosage: 30 MG, QD
     Dates: start: 201210, end: 201305
  4. CYMBALTA [Suspect]
     Dosage: 60 MG, QD
     Route: 048
     Dates: start: 201305
  5. CYMBALTA [Suspect]
     Dosage: 30 MG, QD
     Route: 048
     Dates: start: 201305
  6. BISOCU [Concomitant]
     Dosage: 5 MG, QD
     Dates: start: 2012
  7. OXYCONTIN [Concomitant]
     Dosage: 20 MG, BID
     Dates: start: 2012
  8. EUPANTOL [Concomitant]
     Dosage: 20 MG, QD
     Dates: start: 2012

REACTIONS (2)
  - Hepatic failure [Not Recovered/Not Resolved]
  - Blood phosphorus decreased [Not Recovered/Not Resolved]
